FAERS Safety Report 5801047-0 (Version None)
Quarter: 2008Q3

REPORT INFORMATION
  Report Type: 
  Country: None (occurrence: None)
  Receive Date: 20080704
  Receipt Date: 20080626
  Transmission Date: 20090109
  Serious: Yes (Hospitalization)
  Sender: FDA-Public Use
  Company Number: US-ELI_LILLY_AND_COMPANY-US200804007220

PATIENT
  Sex: Female

DRUGS (4)
  1. HUMULIN R [Suspect]
     Indication: DIABETES MELLITUS
  2. HUMULIN N [Suspect]
  3. LYRICA [Concomitant]
     Dosage: UNK, UNK
  4. PAMELOR [Concomitant]
     Dosage: UNK, UNK

REACTIONS (11)
  - BLINDNESS UNILATERAL [None]
  - BLOOD GLUCOSE DECREASED [None]
  - BLOOD GLUCOSE INCREASED [None]
  - CELLULITIS ORBITAL [None]
  - EYE PAIN [None]
  - FATIGUE [None]
  - HYPOTONIA [None]
  - MALAISE [None]
  - OCULAR HYPERAEMIA [None]
  - STAPHYLOCOCCAL INFECTION [None]
  - VOMITING [None]
